FAERS Safety Report 12313669 (Version 1)
Quarter: 2016Q2

REPORT INFORMATION
  Report Type: Spontaneous
  Country: US (occurrence: US)
  Receive Date: 20160428
  Receipt Date: 20160428
  Transmission Date: 20160815
  Serious: Yes (Hospitalization, Other)
  Sender: FDA-Public Use
  Company Number: US-PFIZER INC-2016223811

PATIENT
  Age: 29 Year
  Sex: Male

DRUGS (13)
  1. OMEPRAZOLE. [Concomitant]
     Active Substance: OMEPRAZOLE
     Indication: DYSPEPSIA
     Dosage: 20MG ONE CAPSULE BY MOUTH IN THE MORNING, AND ONE CAPSULE BY MOUTH AT NIGHT
     Route: 048
     Dates: start: 2015
  2. PREDNISONE. [Concomitant]
     Active Substance: PREDNISONE
     Indication: TRANSPLANT REJECTION
     Dosage: 5MG TWO TABLETS BY MOUTH ONE TIME A DAY
     Route: 048
     Dates: start: 201501
  3. MAGNESIUM OXIDE. [Concomitant]
     Active Substance: MAGNESIUM OXIDE
     Indication: NUTRITIONAL SUPPLEMENTATION
     Dosage: 400MG TWO TABLETS BY MOUTH IN THE MORNING, AND TWO TABLETS BY MOUTH AT NIGHT
     Route: 048
     Dates: start: 2000
  4. RAPAMUNE [Suspect]
     Active Substance: SIROLIMUS
     Dosage: 0.5 ONE TABLET BY MOUTH DAILY
     Route: 048
     Dates: start: 201509
  5. LASIX [Concomitant]
     Active Substance: FUROSEMIDE
     Indication: FLUID RETENTION
     Dosage: 80MG BY MOUTH DAILY
     Route: 048
     Dates: start: 2015
  6. LASIX [Concomitant]
     Active Substance: FUROSEMIDE
     Dosage: 60MG BY MOUTH DAILY
     Route: 048
  7. ZYRTEC [Concomitant]
     Active Substance: CETIRIZINE HYDROCHLORIDE
     Indication: HYPERSENSITIVITY
     Dosage: 10MG ONE TABLET BY MOUTH ONE TIME A DAY
     Route: 048
     Dates: start: 2015
  8. RAPAMUNE [Suspect]
     Active Substance: SIROLIMUS
     Indication: TRANSPLANT REJECTION
     Dosage: 1MG ONE TABLET BY MOUTH DAILY
     Route: 048
     Dates: start: 201509
  9. MYCOPHENOLATE [Concomitant]
     Active Substance: MYCOPHENOLIC ACID
     Indication: TRANSPLANT REJECTION
     Dosage: 500MG TWO TABLETS BY MOUTH IN THE MORNING, AND TWO TABLETS BY MOUTH AT NIGHT
     Route: 048
     Dates: start: 2000
  10. DOXAZOSIN [Concomitant]
     Active Substance: DOXAZOSIN\DOXAZOSIN MESYLATE
     Indication: BLOOD PRESSURE ABNORMAL
     Dosage: 4MG TWO TABLETS BY MOUTH AT NIGHT
     Route: 048
     Dates: start: 2015
  11. WARFARIN [Concomitant]
     Active Substance: WARFARIN
     Indication: BLOOD DISORDER
     Dosage: 1MG FIVE TABLETS BY MOUTH A DAY
     Route: 048
     Dates: start: 201509
  12. MULTIVITAMIN [Concomitant]
     Active Substance: VITAMINS
     Indication: SUPPLEMENTATION THERAPY
     Dosage: ONE TABLET BY MOUTH DAILY
     Route: 048
     Dates: start: 2000
  13. POTASSIUM CHLORIDE. [Concomitant]
     Active Substance: POTASSIUM CHLORIDE
     Indication: BLOOD POTASSIUM DECREASED
     Dosage: 20MEQ FOUR TABLETS BY MOUTH ONCE A DAY
     Route: 048
     Dates: start: 20160212

REACTIONS (11)
  - Weight increased [Not Recovered/Not Resolved]
  - Condition aggravated [Not Recovered/Not Resolved]
  - Headache [Unknown]
  - Fluid retention [Not Recovered/Not Resolved]
  - Peripheral swelling [Unknown]
  - Head discomfort [Unknown]
  - Swelling face [Unknown]
  - Superior vena cava syndrome [Not Recovered/Not Resolved]
  - Thrombosis [Unknown]
  - Pneumonia [Recovered/Resolved with Sequelae]
  - Angiopathy [Recovered/Resolved with Sequelae]

NARRATIVE: CASE EVENT DATE: 2015
